FAERS Safety Report 10072179 (Version 1)
Quarter: 2014Q2

REPORT INFORMATION
  Report Type: Spontaneous
  Country: US (occurrence: None)
  Receive Date: 20140409
  Receipt Date: 20140409
  Transmission Date: 20141212
  Serious: Yes (Other)
  Sender: FDA-Public Use
  Company Number: SYM-2014-19043

PATIENT
  Age: 24 Year
  Sex: Female
  Weight: 81.63 kg

DRUGS (7)
  1. ATIVAN [Suspect]
     Indication: PRODUCT USED FOR UNKNOWN INDICATION
  2. XYREM [Suspect]
     Indication: NARCOLEPSY
     Dosage: 4.5 GM, 2 IN 1 D
     Dates: start: 20140308, end: 20140311
  3. NUVIGIL [Suspect]
     Indication: NARCOLEPSY
     Dosage: 250 MG, 1 IN 1 D
     Dates: end: 20140311
  4. PROZAC (FLUOXETINE HYDROCHLORIDE) (FLUOXETINE HYDROCHLORIDE) [Concomitant]
  5. PRAZOSIN (PRAZOSIN) (PRAZOSIN) [Concomitant]
  6. CLARITIN (LORATADINE) (LORATADINE) [Concomitant]
  7. LORYNA (DROSPIRENONE W/ETHINYLESTRADIOL) IETHINYLESTRADIOL, DROSPIRENONE) [Concomitant]

REACTIONS (5)
  - Convulsion [None]
  - Fall [None]
  - Head injury [None]
  - Headache [None]
  - Tongue injury [None]
